FAERS Safety Report 8241425-6 (Version None)
Quarter: 2012Q1

REPORT INFORMATION
  Report Type: 
  Country: None (occurrence: None)
  Receive Date: 20120328
  Receipt Date: 20120322
  Transmission Date: 20120608
  Serious: Yes (Disabling)
  Sender: FDA-Public Use
  Company Number: GB-ABBOTT-12P-167-0909115-00

PATIENT
  Sex: Male
  Weight: 79 kg

DRUGS (3)
  1. VITAMIN B-12 [Concomitant]
     Indication: CROHN'S DISEASE
     Route: 048
  2. HUMIRA [Suspect]
     Indication: CROHN'S DISEASE
     Route: 058
     Dates: start: 20110628
  3. AZATHIOPRINE [Concomitant]
     Indication: CROHN'S DISEASE
     Route: 048

REACTIONS (3)
  - FATIGUE [None]
  - LETHARGY [None]
  - FEELING ABNORMAL [None]
